FAERS Safety Report 25715080 (Version 3)
Quarter: 2025Q3

REPORT INFORMATION
  Report Type: Report from Study
  Country: US (occurrence: US)
  Receive Date: 20250822
  Receipt Date: 20250923
  Transmission Date: 20251021
  Serious: No
  Sender: MALLINCKRODT
  Company Number: US-MALLINCKRODT-MNK202505022

PATIENT
  Age: 8 Month
  Sex: Female
  Weight: 8 kg

DRUGS (6)
  1. CORTICOTROPIN [Suspect]
     Active Substance: CORTICOTROPIN
     Indication: Infantile spasms
     Dosage: 28 UNITS
     Route: 030
     Dates: start: 20250802, end: 202508
  2. CORTICOTROPIN [Suspect]
     Active Substance: CORTICOTROPIN
     Dosage: 5.6 UNITS
     Dates: start: 202508, end: 202508
  3. CORTICOTROPIN [Suspect]
     Active Substance: CORTICOTROPIN
     Route: 030
     Dates: start: 202508, end: 20250830
  4. FAMOTIDINE [Concomitant]
     Active Substance: FAMOTIDINE
  5. SABRIL [Concomitant]
     Active Substance: VIGABATRIN
  6. VIMPAT [Concomitant]
     Active Substance: LACOSAMIDE

REACTIONS (5)
  - Fluid retention [Unknown]
  - Weight increased [Unknown]
  - Decreased appetite [Unknown]
  - Insomnia [Recovering/Resolving]
  - Wrong technique in product usage process [Unknown]

NARRATIVE: CASE EVENT DATE: 20250101
